FAERS Safety Report 17863992 (Version 2)
Quarter: 2021Q2

REPORT INFORMATION
  Report Type: Spontaneous
  Country: US (occurrence: US)
  Receive Date: 20200605
  Receipt Date: 20210506
  Transmission Date: 20210717
  Serious: Yes (Other)
  Sender: FDA-Public Use
  Company Number: US-PFIZER INC-2020219808

PATIENT
  Age: 65 Year
  Sex: Female
  Weight: 54.43 kg

DRUGS (3)
  1. PREMARIN [Suspect]
     Active Substance: ESTROGENS, CONJUGATED
     Dosage: QUANTITY FOR 90 DAYS: 6 TUBES APPLY 1 ONE EACH VAGINALLY TWICE WEEKLY
     Route: 067
  2. CALCIUM + VITAMIN D [CALCIUM CARBONATE;COLECALCIFEROL] [Concomitant]
     Active Substance: CALCIUM CARBONATE\CHOLECALCIFEROL
     Dosage: UNK
  3. PREMARIN [Suspect]
     Active Substance: ESTROGENS, CONJUGATED
     Indication: OESTROGEN DEFICIENCY
     Dosage: UNK, 2X/WEEK (INSERTS A HALF A CC INTO VAGINA TWICE WEEKLY)
     Route: 067
     Dates: start: 2018

REACTIONS (6)
  - Pancreatic carcinoma [Unknown]
  - Vulvovaginal dryness [Unknown]
  - Vulvovaginal burning sensation [Unknown]
  - Pain [Unknown]
  - Menopause [Unknown]
  - Off label use [Unknown]
